FAERS Safety Report 25922361 (Version 1)
Quarter: 2025Q4

REPORT INFORMATION
  Report Type: Spontaneous
  Country: US (occurrence: US)
  Receive Date: 20251015
  Receipt Date: 20251015
  Transmission Date: 20260117
  Serious: No
  Sender: TOLMAR
  Company Number: US-TOLMAR, INC.-25US057928

PATIENT
  Age: 8 Year
  Sex: Female

DRUGS (3)
  1. FENSOLVI [Suspect]
     Active Substance: LEUPROLIDE ACETATE
     Indication: Precocious puberty
     Dosage: EXPIRATION DATE- UNK; UNK; 01-JAN-2026
     Route: 058
     Dates: start: 20250322
  2. FENSOLVI [Suspect]
     Active Substance: LEUPROLIDE ACETATE
     Dosage: 45 MILLIGRAM, Q 6 MONTH
     Route: 058
     Dates: start: 20240926
  3. DEVICE [Suspect]
     Active Substance: DEVICE
     Indication: Precocious puberty
     Dosage: EXPIRATION DATE- UNK; UNK; 01-JAN-2026

REACTIONS (2)
  - Intercepted product administration error [Unknown]
  - Needle issue [Unknown]

NARRATIVE: CASE EVENT DATE: 20250322
